FAERS Safety Report 15680425 (Version 1)
Quarter: 2018Q4

REPORT INFORMATION
  Report Type: Spontaneous
  Country: US (occurrence: US)
  Receive Date: 20181203
  Receipt Date: 20181203
  Transmission Date: 20190205
  Serious: Yes (Hospitalization, Other)
  Sender: FDA-Public Use
  Company Number: US-TORRENT-00007249

PATIENT
  Age: 50 Year
  Sex: Female

DRUGS (1)
  1. ZOLPIDEM [Suspect]
     Active Substance: ZOLPIDEM\ZOLPIDEM TARTRATE
     Indication: PRODUCT USED FOR UNKNOWN INDICATION
     Dosage: UNKNOWN

REACTIONS (7)
  - Seizure [Recovering/Resolving]
  - Lethargy [Recovering/Resolving]
  - Overdose [Unknown]
  - Posterior reversible encephalopathy syndrome [Recovering/Resolving]
  - Coma [Recovering/Resolving]
  - Brain oedema [Recovering/Resolving]
  - Intracranial pressure increased [Recovering/Resolving]
